FAERS Safety Report 22953619 (Version 2)
Quarter: 2023Q4

REPORT INFORMATION
  Report Type: Spontaneous
  Country: US (occurrence: US)
  Receive Date: 20230918
  Receipt Date: 20231010
  Transmission Date: 20240109
  Serious: No
  Sender: FDA-Public Use
  Company Number: US-BAYER-2023A120823

PATIENT
  Age: 58 Year
  Sex: Female

DRUGS (1)
  1. CLIMARA PRO [Suspect]
     Active Substance: ESTRADIOL\LEVONORGESTREL
     Dosage: UNK
     Route: 062
     Dates: start: 202010

REACTIONS (4)
  - Application site pruritus [None]
  - Application site erythema [None]
  - Skin erosion [None]
  - Device adhesion issue [None]

NARRATIVE: CASE EVENT DATE: 20230101
